FAERS Safety Report 4879610-3 (Version None)
Quarter: 2006Q1

REPORT INFORMATION
  Report Type: 
  Country: None (occurrence: None)
  Receive Date: 20060113
  Receipt Date: 20060105
  Transmission Date: 20060701
  Serious: Yes (Other)
  Sender: FDA-Public Use
  Company Number: CA-JNJFOC-20051002055

PATIENT
  Sex: Female
  Weight: 60.5 kg

DRUGS (9)
  1. REMICADE [Suspect]
     Dosage: TOTAL OF 10 INFUSIONS RECEIVED
     Route: 042
  2. REMICADE [Suspect]
     Route: 042
  3. REMICADE [Suspect]
     Indication: RHEUMATOID ARTHRITIS
     Route: 042
  4. ARTHROTEC [Concomitant]
  5. ARTHROTEC [Concomitant]
     Indication: RHEUMATOID ARTHRITIS
  6. METHOTREXATE [Concomitant]
     Indication: RHEUMATOID ARTHRITIS
     Route: 048
  7. FOLIC ACID [Concomitant]
     Route: 048
  8. INDAPAMIDE [Concomitant]
     Route: 048
  9. PLAQUENIL [Concomitant]
     Indication: RHEUMATOID ARTHRITIS
     Route: 048

REACTIONS (2)
  - LYMPHADENOPATHY [None]
  - LYMPHOMA [None]
